FAERS Safety Report 19562777 (Version 7)
Quarter: 2021Q3

REPORT INFORMATION
  Report Type: Spontaneous
  Country: US (occurrence: US)
  Receive Date: 20210714
  Receipt Date: 20210914
  Transmission Date: 20211014
  Serious: Yes (Other)
  Sender: FDA-Public Use
  Company Number: US-GLAXOSMITHKLINE-US2021AMR150261

PATIENT
  Age: 64 Year
  Sex: Female

DRUGS (4)
  1. ZEJULA [Suspect]
     Active Substance: NIRAPARIB
     Indication: OVARIAN CANCER
     Dosage: 200 MG, QD
     Dates: start: 20210621
  2. ZEJULA [Suspect]
     Active Substance: NIRAPARIB
     Dosage: 200 MG, QD
  3. ZEJULA [Suspect]
     Active Substance: NIRAPARIB
     Dosage: 200 MG, QD
     Dates: start: 20210701
  4. ZEJULA [Suspect]
     Active Substance: NIRAPARIB
     Dosage: 200 MG, QD

REACTIONS (16)
  - Pruritus [Unknown]
  - Dyspepsia [Not Recovered/Not Resolved]
  - Weight increased [Unknown]
  - Postoperative wound infection [Unknown]
  - Hypoaesthesia [Unknown]
  - Arthralgia [Not Recovered/Not Resolved]
  - Pain [Not Recovered/Not Resolved]
  - Neuralgia [Unknown]
  - Nausea [Unknown]
  - Dry skin [Unknown]
  - Insomnia [Recovering/Resolving]
  - Rash pruritic [Unknown]
  - Skin disorder [Unknown]
  - Skin burning sensation [Unknown]
  - Erythema [Unknown]
  - Skin swelling [Recovering/Resolving]

NARRATIVE: CASE EVENT DATE: 202107
